FAERS Safety Report 24332841 (Version 3)
Quarter: 2024Q4

REPORT INFORMATION
  Report Type: Spontaneous
  Country: US (occurrence: US)
  Receive Date: 20240918
  Receipt Date: 20241114
  Transmission Date: 20250115
  Serious: No
  Sender: PFIZER
  Company Number: US-PFIZER INC-202400257047

PATIENT
  Age: 45 Year
  Sex: Female
  Weight: 61.23 kg

DRUGS (2)
  1. DEPO-PROVERA [Suspect]
     Active Substance: MEDROXYPROGESTERONE ACETATE
     Indication: Contraception
     Dosage: 104 MG, ONCE EVERY 3 MONTHS
  2. CETIRIZINE [Concomitant]
     Active Substance: CETIRIZINE HYDROCHLORIDE
     Indication: Hypersensitivity
     Dosage: UNK, DAILY

REACTIONS (3)
  - Needle issue [Unknown]
  - Drug dose omission by device [Unknown]
  - Product administration error [Unknown]

NARRATIVE: CASE EVENT DATE: 20240914
